FAERS Safety Report 17736655 (Version 2)
Quarter: 2020Q2

REPORT INFORMATION
  Report Type: Spontaneous
  Country: MX (occurrence: MX)
  Receive Date: 20200501
  Receipt Date: 20200512
  Transmission Date: 20200714
  Serious: Yes (Other)
  Sender: FDA-Public Use
  Company Number: MX-BIOMARINAP-MX-2020-129931

PATIENT
  Age: 8 Year
  Sex: Male
  Weight: 19 kg

DRUGS (1)
  1. NAGLAZYME [Suspect]
     Active Substance: GALSULFASE
     Indication: MUCOPOLYSACCHARIDOSIS VI
     Dosage: 1 MILLIGRAM/KILOGRAM, QW
     Route: 042
     Dates: start: 20140408

REACTIONS (6)
  - Corneal opacity [Not Recovered/Not Resolved]
  - Hernia repair [Recovered/Resolved]
  - Mobility decreased [Not Recovered/Not Resolved]
  - Hypoacusis [Unknown]
  - Joint stiffness [Unknown]
  - Refraction disorder [Not Recovered/Not Resolved]

NARRATIVE: CASE EVENT DATE: 201506
